FAERS Safety Report 25544389 (Version 4)
Quarter: 2025Q3

REPORT INFORMATION
  Report Type: Spontaneous
  Country: US (occurrence: US)
  Receive Date: 20250711
  Receipt Date: 20250903
  Transmission Date: 20251021
  Serious: Yes (Hospitalization, Other)
  Sender: PFIZER
  Company Number: US-PFIZER INC-202500118457

PATIENT
  Age: 5 Year
  Sex: Female
  Weight: 17 kg

DRUGS (7)
  1. XALKORI [Suspect]
     Active Substance: CRIZOTINIB
     Indication: Lymphoma
     Dosage: TWO CAPSULES DAILY, 200 MILLIGRAMS
     Dates: start: 20250426, end: 20250703
  2. XALKORI [Suspect]
     Active Substance: CRIZOTINIB
     Indication: Anaplastic large cell lymphoma T- and null-cell types
     Dosage: 200 MG, 2X/DAY
     Route: 048
     Dates: start: 20250426, end: 20250704
  3. XALKORI [Suspect]
     Active Substance: CRIZOTINIB
     Dates: start: 202505, end: 202507
  4. VITAMIN D3 [Concomitant]
     Active Substance: CHOLECALCIFEROL
     Indication: Supplementation therapy
     Dosage: 800 IU, DAILY
     Route: 048
  5. VITAMIN C [Concomitant]
     Active Substance: ASCORBIC ACID
     Indication: Supplementation therapy
     Dosage: 100 MG, DAILY
     Route: 048
  6. PEPCID AC [Concomitant]
     Active Substance: FAMOTIDINE
     Indication: Antacid therapy
     Dosage: 10 MG, 2X/DAY PRN
  7. PENTAMIDINE [Concomitant]
     Active Substance: PENTAMIDINE
     Indication: Antifungal prophylaxis

REACTIONS (3)
  - Second primary malignancy [Unknown]
  - Brain neoplasm malignant [Unknown]
  - Product prescribing error [Unknown]
